FAERS Safety Report 5678027-1 (Version None)
Quarter: 2008Q1

REPORT INFORMATION
  Report Type: 
  Country: None (occurrence: None)
  Receive Date: 20080324
  Receipt Date: 20080324
  Transmission Date: 20080703
  Serious: No
  Sender: FDA-Public Use
  Company Number: None

PATIENT
  Age: 61 Year
  Sex: Male

DRUGS (2)
  1. COREG CR [Suspect]
     Dosage: CAPSULE, EXTENDED RELEASE
  2. COREG CR [Suspect]
     Dosage: CAPSULE, EXTENDED RELEASE

REACTIONS (4)
  - DRUG DISPENSING ERROR [None]
  - EMOTIONAL DISTRESS [None]
  - INCORRECT DOSE ADMINISTERED [None]
  - MEDICATION ERROR [None]
